FAERS Safety Report 20209873 (Version 1)
Quarter: 2021Q4

REPORT INFORMATION
  Report Type: Spontaneous
  Country: CN (occurrence: CN)
  Receive Date: 20211221
  Receipt Date: 20211221
  Transmission Date: 20220304
  Serious: Yes (Life-Threatening, Hospitalization, Other)
  Sender: FDA-Public Use
  Company Number: CN-Accord-246739

PATIENT
  Age: 56 Year
  Sex: Female

DRUGS (10)
  1. ATORVASTATIN [Suspect]
     Active Substance: ATORVASTATIN
     Indication: Hyperlipidaemia
  2. SIMVASTATIN [Suspect]
     Active Substance: SIMVASTATIN
     Indication: Thrombolysis
     Dosage: 20 MG QN
  3. AMLODIPINE [Concomitant]
     Active Substance: AMLODIPINE BESYLATE
     Indication: Hypertension
  4. METOPROLOL [Concomitant]
     Active Substance: METOPROLOL
     Indication: Hypertension
  5. UROKINASE [Concomitant]
     Active Substance: UROKINASE
     Indication: Thrombolysis
     Dosage: 200000 U TWICE THROUGH CATHETER?WITHIN 1 H
  6. HEPARIN [Concomitant]
     Active Substance: HEPARIN SODIUM
     Indication: Thrombolysis
     Dosage: 5000 U, Q12H
     Route: 058
  7. RIVAROXABAN [Concomitant]
     Active Substance: RIVAROXABAN
     Indication: Thrombolysis
     Dosage: 15 MG BID
  8. TACROLIMUS [Concomitant]
     Active Substance: TACROLIMUS
     Indication: Myopathy
  9. SOLU-MEDROL [Concomitant]
     Active Substance: METHYLPREDNISOLONE SODIUM SUCCINATE
     Indication: Myopathy
  10. METHYLPREDNISOLONE [Concomitant]
     Active Substance: METHYLPREDNISOLONE
     Indication: Myopathy

REACTIONS (2)
  - Myopathy [Recovered/Resolved]
  - Deep vein thrombosis [Recovering/Resolving]
